FAERS Safety Report 19108600 (Version 5)
Quarter: 2022Q1

REPORT INFORMATION
  Report Type: Spontaneous
  Country: US (occurrence: US)
  Receive Date: 20210408
  Receipt Date: 20220208
  Transmission Date: 20220423
  Serious: Yes (Death, Hospitalization, Other)
  Sender: FDA-Public Use
  Company Number: US-PFIZER INC-2021375838

PATIENT
  Age: 73 Year
  Sex: Female
  Weight: 107.3 kg

DRUGS (1)
  1. XELJANZ XR [Suspect]
     Active Substance: TOFACITINIB CITRATE
     Indication: Rheumatoid arthritis
     Dosage: 11 MG, DAILY
     Route: 048
     Dates: start: 20190825

REACTIONS (4)
  - COVID-19 pneumonia [Fatal]
  - Asthenia [Unknown]
  - Dyspnoea [Unknown]
  - Rhabdomyolysis [Unknown]
